FAERS Safety Report 23382187 (Version 1)
Quarter: 2024Q1

REPORT INFORMATION
  Report Type: Spontaneous
  Country: US (occurrence: None)
  Receive Date: 20240109
  Receipt Date: 20240109
  Transmission Date: 20240410
  Serious: No
  Sender: FDA-Public Use
  Company Number: 2024A006168

PATIENT
  Age: 75 Year
  Sex: Female

DRUGS (1)
  1. TUDORZA PRESSAIR [Suspect]
     Active Substance: ACLIDINIUM BROMIDE
     Dosage: 1PUFF TWICE DAILY

REACTIONS (2)
  - Dyspnoea [Unknown]
  - Frustration tolerance decreased [Unknown]
